FAERS Safety Report 23157029 (Version 1)
Quarter: 2023Q4

REPORT INFORMATION
  Report Type: Spontaneous
  Country: GB (occurrence: GB)
  Receive Date: 20231108
  Receipt Date: 20231108
  Transmission Date: 20240110
  Serious: Yes (Hospitalization)
  Sender: FDA-Public Use
  Company Number: None

PATIENT
  Age: 88 Year
  Sex: Female

DRUGS (20)
  1. APIXABAN [Suspect]
     Active Substance: APIXABAN
     Indication: Deep vein thrombosis
  2. ATORVASTATIN [Concomitant]
     Active Substance: ATORVASTATIN
  3. ALBUTEROL [Concomitant]
     Active Substance: ALBUTEROL
     Dosage: ONE OR TWO PUFFS TO BE INHALED UP TO FOUR TIMES A DAY
  4. HYDROMOL [Concomitant]
  5. SERETIDE [Concomitant]
     Active Substance: FLUTICASONE PROPIONATE\SALMETEROL XINAFOATE
     Route: 055
  6. CALCIUM CARBONATE\CHOLECALCIFEROL [Concomitant]
     Active Substance: CALCIUM CARBONATE\CHOLECALCIFEROL
     Dosage: NIGHT
  7. HUMALOG [Concomitant]
     Active Substance: INSULIN LISPRO
     Dosage: MIX50 100UNITS/ML. UP TO 15?MINUTES BEFORE OR SOON AFTER A MEAL, ACCORDING TO REQUIREMENTS
     Route: 058
  8. DERMOL [Concomitant]
     Active Substance: BENZALKONIUM CHLORIDE\CHLORHEXIDINE HYDROCHLORIDE\ISOPROPYL MYRISTATE\PARAFFIN
  9. FERROUS SULFATE [Concomitant]
     Active Substance: FERROUS SULFATE
  10. OMEPRAZOLE [Concomitant]
     Active Substance: OMEPRAZOLE
  11. RAMIPRIL [Concomitant]
     Active Substance: RAMIPRIL
  12. LINAGLIPTIN [Concomitant]
     Active Substance: LINAGLIPTIN
  13. LEVOTHYROXINE [Concomitant]
     Active Substance: LEVOTHYROXINE
     Dosage: MORNING.30-60 MINUTES BEFORE BREAKFAST, CAFFEINE-CONTAINING DRINKS OR OTHER MEDICATION
  14. MONTELUKAST [Concomitant]
     Active Substance: MONTELUKAST SODIUM
     Dosage: AT NIGHT
  15. DOXAZOSIN [Concomitant]
     Active Substance: DOXAZOSIN MESYLATE
     Dosage: MORNING AND EVENING
  16. MOMETASONE [Concomitant]
     Active Substance: MOMETASONE
     Dosage: EACH NOSTRIL. THEN REDUCE WHEN SYMPTOMS UNDER CONTROL
     Route: 045
  17. CARBOMER [Concomitant]
     Active Substance: CARBOMER
  18. BUMETANIDE [Concomitant]
     Active Substance: BUMETANIDE
     Dosage: MORNING
  19. CARBOCYSTEINE [Concomitant]
     Active Substance: CARBOCYSTEINE
  20. LEVOTHYROXINE [Concomitant]
     Active Substance: LEVOTHYROXINE
     Dosage: MORNING. 30-60 MINUTES BEFORE BREAKFAST, CAFFEINE-CONTAINING DRINKS OR OTHER MEDICATION

REACTIONS (1)
  - Pulmonary embolism [Not Recovered/Not Resolved]
